FAERS Safety Report 23687913 (Version 1)
Quarter: 2024Q1

REPORT INFORMATION
  Report Type: Spontaneous
  Country: US (occurrence: None)
  Receive Date: 20240329
  Receipt Date: 20240329
  Transmission Date: 20240409
  Serious: Yes (Other)
  Sender: FDA-Public Use
  Company Number: None

PATIENT
  Age: 67 Year
  Sex: Male

DRUGS (1)
  1. LENALIDOMIDE [Suspect]
     Active Substance: LENALIDOMIDE
     Indication: Plasma cell myeloma
     Dosage: 25MG DAILY X ORAL
     Route: 048
     Dates: start: 20240221

REACTIONS (4)
  - Diarrhoea [None]
  - Abdominal pain upper [None]
  - Vision blurred [None]
  - Therapy change [None]

NARRATIVE: CASE EVENT DATE: 20240328
